FAERS Safety Report 12404756 (Version 2)
Quarter: 2016Q3

REPORT INFORMATION
  Report Type: Spontaneous
  Country: DK (occurrence: DE)
  Receive Date: 20160525
  Receipt Date: 20160712
  Transmission Date: 20161109
  Serious: Yes (Other)
  Sender: FDA-Public Use
  Company Number: DE-FRI-1000084910

PATIENT
  Age: 34 Year
  Sex: Female
  Weight: 76 kg

DRUGS (7)
  1. CLONT / METRONIDAZOLE [Concomitant]
     Indication: GARDNERELLA TEST POSITIVE
     Route: 048
     Dates: start: 20150509, end: 20150516
  2. UTROGEST / PROGESTERONE [Concomitant]
     Indication: CERVICAL INCOMPETENCE
     Dosage: 200 MG
     Route: 065
     Dates: start: 20150516, end: 20150516
  3. MAGNESIUM / MAGENSIUM [Concomitant]
     Indication: CERVICAL INCOMPETENCE
     Route: 048
     Dates: start: 20150516, end: 20150516
  4. CELESTAN / BETAMETHASONE [Concomitant]
     Indication: MATERNAL THERAPY TO ENHANCE FOETAL LUNG MATURITY
     Route: 030
     Dates: start: 20150509, end: 20150510
  5. CITALOPRAM [Suspect]
     Active Substance: CITALOPRAM HYDROBROMIDE
     Indication: DEPRESSION
     Dosage: 20 MG
     Route: 048
     Dates: start: 20150509, end: 20150512
  6. AMOXICILLIN / AMOXICILLIN [Concomitant]
     Indication: CYSTITIS
     Route: 048
     Dates: start: 20141229, end: 20150102
  7. FOLIO FORTE / FOLIC ACID, IODINE [Concomitant]
     Indication: PROPHYLAXIS OF NEURAL TUBE DEFECT
     Dosage: 0.8 MG
     Route: 048

REACTIONS (2)
  - Pregnancy [Recovered/Resolved]
  - Foetal hypokinesia [Recovered/Resolved]
